FAERS Safety Report 16274229 (Version 2)
Quarter: 2019Q4

REPORT INFORMATION
  Report Type: Spontaneous
  Country: US (occurrence: US)
  Receive Date: 20190504
  Receipt Date: 20191116
  Transmission Date: 20200122
  Serious: Yes (Other)
  Sender: FDA-Public Use
  Company Number: US-SUN PHARMACEUTICAL INDUSTRIES LTD-2019R1-206838

PATIENT
  Age: 27 Year
  Sex: Female

DRUGS (1)
  1. HYDRALAZINE [Suspect]
     Active Substance: HYDRALAZINE HYDROCHLORIDE
     Indication: PRE-ECLAMPSIA
     Dosage: UNK
     Route: 042

REACTIONS (4)
  - Supraventricular tachycardia [Recovered/Resolved]
  - Premature delivery [Unknown]
  - Cardiac arrest [Recovered/Resolved]
  - Exposure during pregnancy [Unknown]
